FAERS Safety Report 17238382 (Version 1)
Quarter: 2020Q1

REPORT INFORMATION
  Report Type: Spontaneous
  Country: US (occurrence: US)
  Receive Date: 20200103
  Receipt Date: 20200103
  Transmission Date: 20200409
  Serious: Yes (Disabling, Other)
  Sender: FDA-Public Use
  Company Number: None

PATIENT
  Age: 32 Year
  Sex: Male
  Weight: 83.25 kg

DRUGS (3)
  1. OMEGA-3 (FISH OIL) [Concomitant]
  2. CLONAZEPAM. [Suspect]
     Active Substance: CLONAZEPAM
     Indication: PANIC DISORDER
     Dosage: ?          QUANTITY:45 TABLET(S);?
     Route: 048
     Dates: start: 20191206, end: 20200103
  3. SERTRALINE [Concomitant]
     Active Substance: SERTRALINE HYDROCHLORIDE

REACTIONS (3)
  - Withdrawal syndrome [None]
  - Product substitution issue [None]
  - Asthenia [None]

NARRATIVE: CASE EVENT DATE: 20191206
